FAERS Safety Report 17717837 (Version 1)
Quarter: 2020Q2

REPORT INFORMATION
  Report Type: Spontaneous
  Country: CA (occurrence: CA)
  Receive Date: 20200428
  Receipt Date: 20200428
  Transmission Date: 20200714
  Serious: Yes (Other)
  Sender: FDA-Public Use
  Company Number: CA-ROCHE-2589617

PATIENT
  Age: 36 Year
  Sex: Female

DRUGS (2)
  1. ACTIVASE [Suspect]
     Active Substance: ALTEPLASE
     Indication: PULMONARY EMBOLISM
     Route: 042
  2. HEPARIN SODIUM. [Suspect]
     Active Substance: HEPARIN SODIUM
     Indication: THROMBOSIS PROPHYLAXIS
     Dosage: SOLUTION INTRAVENOUS
     Route: 058

REACTIONS (7)
  - Procedural haemorrhage [Recovered/Resolved]
  - Intra-abdominal haemorrhage [Recovered/Resolved]
  - Haematoma muscle [Recovered/Resolved]
  - Lower gastrointestinal haemorrhage [Recovered/Resolved]
  - Hepatic enzyme increased [Recovered/Resolved]
  - Pulmonary artery thrombosis [Recovered/Resolved]
  - Vaginal haemorrhage [Recovered/Resolved]
